FAERS Safety Report 9232189 (Version 2)
Quarter: 2014Q1

REPORT INFORMATION
  Report Type: Report from Study
  Country: US (occurrence: US)
  Receive Date: 20130415
  Receipt Date: 20140113
  Transmission Date: 20141002
  Serious: Yes (Other)
  Sender: FDA-Public Use
  Company Number: US-BAXTER-2013BAX013387

PATIENT
  Age: 52 Year
  Sex: Male

DRUGS (1)
  1. ARALAST NP [Suspect]
     Indication: PRODUCT USED FOR UNKNOWN INDICATION
     Route: 042

REACTIONS (2)
  - Lower respiratory tract infection fungal [Not Recovered/Not Resolved]
  - Pneumonia [Recovered/Resolved]
